FAERS Safety Report 13105611 (Version 1)
Quarter: 2017Q1

REPORT INFORMATION
  Report Type: Spontaneous
  Country: US (occurrence: US)
  Receive Date: 20170111
  Receipt Date: 20170111
  Transmission Date: 20170428
  Serious: Yes (Hospitalization)
  Sender: FDA-Public Use
  Company Number: None

PATIENT
  Age: 78 Year
  Sex: Male
  Weight: 94.9 kg

DRUGS (1)
  1. ADALIMUMAB [Suspect]
     Active Substance: ADALIMUMAB
     Indication: REITER^S SYNDROME
     Route: 058
     Dates: start: 20070622, end: 20161115

REACTIONS (1)
  - Urethral cancer [None]

NARRATIVE: CASE EVENT DATE: 20161117
